FAERS Safety Report 19461705 (Version 1)
Quarter: 2021Q2

REPORT INFORMATION
  Report Type: Report from Study
  Country: RO (occurrence: RO)
  Receive Date: 20210625
  Receipt Date: 20210625
  Transmission Date: 20210717
  Serious: Yes (Hospitalization)
  Sender: FDA-Public Use
  Company Number: RO-GILEAD-2021-0531273

PATIENT
  Age: 90 Year
  Sex: Female

DRUGS (10)
  1. APROVEL [Concomitant]
     Active Substance: IRBESARTAN
  2. ASPENTER [Concomitant]
     Active Substance: ASPIRIN
  3. LEDIPASVIR/SOFOSBUVIR [Suspect]
     Active Substance: LEDIPASVIR\SOFOSBUVIR
     Indication: HEPATIC CIRRHOSIS
     Dosage: 1 DOSAGE FORM, QD
     Route: 048
     Dates: start: 20210424, end: 20210601
  4. ENAP [ENALAPRILAT] [Concomitant]
  5. NORVASC [Concomitant]
     Active Substance: AMLODIPINE BESYLATE
  6. LEDIPASVIR/SOFOSBUVIR [Suspect]
     Active Substance: LEDIPASVIR\SOFOSBUVIR
     Indication: HEPATITIS C
  7. UNASYN [SULTAMICILLIN] [Concomitant]
     Active Substance: SULTAMICILLIN
  8. TERTENSIF [Concomitant]
     Active Substance: INDAPAMIDE
  9. ENALAPRIL [Concomitant]
     Active Substance: ENALAPRIL
  10. BETASERC [Concomitant]
     Active Substance: BETAHISTINE

REACTIONS (6)
  - Urinary tract infection [Not Recovered/Not Resolved]
  - Asthenia [Recovered/Resolved]
  - Hyponatraemia [Recovered/Resolved]
  - Vomiting [Recovered/Resolved]
  - Dizziness [Recovered/Resolved]
  - Hypertension [Not Recovered/Not Resolved]

NARRATIVE: CASE EVENT DATE: 2021
